FAERS Safety Report 9285239 (Version 1)
Quarter: 2013Q2

REPORT INFORMATION
  Report Type: Spontaneous
  Country: KZ (occurrence: KZ)
  Receive Date: 20130513
  Receipt Date: 20130513
  Transmission Date: 20140414
  Serious: Yes (Other)
  Sender: FDA-Public Use
  Company Number: KZ-JNJFOC-20130500014

PATIENT
  Age: 56 Year
  Sex: Male
  Weight: 60 kg

DRUGS (1)
  1. REMICADE [Suspect]
     Indication: CROHN^S DISEASE
     Dosage: DOSE: 5 MG/KG
     Route: 042

REACTIONS (3)
  - Renal failure acute [Recovered/Resolved with Sequelae]
  - Nephritis [Recovering/Resolving]
  - Prostatitis [Unknown]
